FAERS Safety Report 8560164-5 (Version None)
Quarter: 2012Q3

REPORT INFORMATION
  Report Type: 
  Country: None (occurrence: None)
  Receive Date: 20120723
  Receipt Date: 20120710
  Transmission Date: 20120928
  Serious: Yes (Hospitalization, Other)
  Sender: FDA-Public Use
  Company Number: 2012MA008689

PATIENT
  Sex: Female

DRUGS (4)
  1. INDAPAMIDE [Suspect]
     Indication: HYPERTENSION
     Dosage: 2,5 NG;QD;PO
     Route: 048
     Dates: start: 20120613
  2. AMLODIPINE [Concomitant]
  3. RAMIPRIL [Concomitant]
  4. ATENOLOL [Concomitant]

REACTIONS (7)
  - POSTICTAL STATE [None]
  - UNRESPONSIVE TO STIMULI [None]
  - HYPOXIC-ISCHAEMIC ENCEPHALOPATHY [None]
  - BLOOD POTASSIUM ABNORMAL [None]
  - CONVULSION [None]
  - CONFUSIONAL STATE [None]
  - HYPONATRAEMIA [None]
